FAERS Safety Report 25708857 (Version 2)
Quarter: 2025Q3

REPORT INFORMATION
  Report Type: Spontaneous
  Country: EU (occurrence: EU)
  Receive Date: 20250821
  Receipt Date: 20250901
  Transmission Date: 20251020
  Serious: Yes (Other)
  Sender: BOEHRINGER INGELHEIM
  Company Number: EU-BoehringerIngelheim-2025-BI-090268

PATIENT
  Sex: Female

DRUGS (2)
  1. PRAMIPEXOLE DIHYDROCHLORIDE [Suspect]
     Active Substance: PRAMIPEXOLE DIHYDROCHLORIDE
     Indication: Restless legs syndrome
  2. PRAMIPEXOLE DIHYDROCHLORIDE [Suspect]
     Active Substance: PRAMIPEXOLE DIHYDROCHLORIDE
     Dosage: FOR MANY YEARS I HAVE HAD TO TAKE THEM EVERY DAY STARTED WITH 0.18 AND NOW I AM UP TO 0.65. AT THE MOMENT I AM GIVEN PRAMIPEXOLE 2X 0.26 MG + 1/2 TABLET IN TOTAL 0.65 MG (I CUT A TABLET) I TAKE THEM LATE IN THE AFTERNOON.

REACTIONS (3)
  - Drug dependence [Not Recovered/Not Resolved]
  - Drug ineffective [Not Recovered/Not Resolved]
  - Feeling abnormal [Not Recovered/Not Resolved]
